FAERS Safety Report 11003302 (Version 1)
Quarter: 2015Q2

REPORT INFORMATION
  Report Type: Not Available
  Country: US (occurrence: US)
  Receive Date: 20150409
  Receipt Date: 20150409
  Transmission Date: 20150821
  Serious: No
  Sender: FDA-Public Use
  Company Number: US-LUPIN PHARMACEUTICALS INC.-E2B_00002637

PATIENT
  Age: 10 Year
  Sex: Male
  Weight: 29.51 kg

DRUGS (1)
  1. IMIPRAMINE HYDROCHLORIDE TABLETS 25MG [Suspect]
     Active Substance: IMIPRAMINE HYDROCHLORIDE
     Indication: ENURESIS
     Dates: start: 201408

REACTIONS (3)
  - Product substitution issue [Unknown]
  - Drug ineffective [Unknown]
  - Enuresis [Not Recovered/Not Resolved]

NARRATIVE: CASE EVENT DATE: 201408
